FAERS Safety Report 24863144 (Version 1)
Quarter: 2025Q1

REPORT INFORMATION
  Report Type: Spontaneous
  Country: US (occurrence: US)
  Receive Date: 20250120
  Receipt Date: 20250120
  Transmission Date: 20250409
  Serious: No
  Sender: SANOFI AVENTIS
  Company Number: US-SA-2025SA012898

PATIENT
  Age: 58 Year
  Sex: Female
  Weight: 54.4 kg

DRUGS (11)
  1. DUPIXENT [Suspect]
     Active Substance: DUPILUMAB
     Indication: Dermatitis atopic
     Dosage: 300 MG, QOW
     Route: 058
  2. TREMFYA [Concomitant]
     Active Substance: GUSELKUMAB
  3. Ester c [Concomitant]
  4. ZYRTEC [Concomitant]
     Active Substance: CETIRIZINE HYDROCHLORIDE
  5. NUTRAFOL [Concomitant]
  6. VITAMINS [Concomitant]
     Active Substance: VITAMINS
  7. CALTRATE [Concomitant]
     Active Substance: CALCIUM CARBONATE
  8. ZORYVE [Concomitant]
     Active Substance: ROFLUMILAST
  9. OPZELURA [Concomitant]
     Active Substance: RUXOLITINIB PHOSPHATE
  10. VTAMA [Concomitant]
     Active Substance: TAPINAROF
  11. CLOBETASOL PROPIONATE [Concomitant]
     Active Substance: CLOBETASOL PROPIONATE

REACTIONS (1)
  - Dermatitis atopic [Unknown]
